FAERS Safety Report 6017841-X (Version None)
Quarter: 2008Q4

REPORT INFORMATION
  Report Type: 
  Country: None (occurrence: None)
  Receive Date: 20081223
  Receipt Date: 20081215
  Transmission Date: 20090506
  Serious: Yes (Death)
  Sender: FDA-Public Use
  Company Number: US-PFIZER INC-2008153717

PATIENT
  Sex: Male

DRUGS (4)
  1. GABAPENTIN [Suspect]
  2. OXYCODONE [Suspect]
  3. CYCLOBENZAPRINE [Suspect]
  4. ZOLPIDEM [Suspect]

REACTIONS (3)
  - CARDIAC ARREST [None]
  - COMPLETED SUICIDE [None]
  - RESPIRATORY ARREST [None]
